FAERS Safety Report 19978596 (Version 1)
Quarter: 2021Q4

REPORT INFORMATION
  Report Type: Spontaneous
  Country: US (occurrence: US)
  Receive Date: 20211019
  Receipt Date: 20211019
  Transmission Date: 20220303
  Serious: Yes (Hospitalization)
  Sender: FDA-Public Use
  Company Number: None

PATIENT
  Age: 40 Year
  Sex: Male
  Weight: 82.3 kg

DRUGS (5)
  1. CARBOPLATIN [Suspect]
     Active Substance: CARBOPLATIN
     Dates: start: 20210919
  2. ETOPOSIDE [Suspect]
     Active Substance: ETOPOSIDE
     Dates: end: 20210919
  3. FILGRASTIM [Suspect]
     Active Substance: FILGRASTIM
     Dates: end: 20210929
  4. IFOSFAMIDE [Suspect]
     Active Substance: IFOSFAMIDE
     Dates: end: 20210904
  5. TAXOL [Suspect]
     Active Substance: PACLITAXEL
     Dates: end: 20210902

REACTIONS (4)
  - Platelet count decreased [None]
  - Anaemia [None]
  - Neutropenic sepsis [None]
  - Duodenal obstruction [None]

NARRATIVE: CASE EVENT DATE: 20210929
